FAERS Safety Report 22219001 (Version 1)
Quarter: 2023Q2

REPORT INFORMATION
  Report Type: Spontaneous
  Country: US (occurrence: US)
  Receive Date: 20230417
  Receipt Date: 20230417
  Transmission Date: 20230722
  Serious: Yes (Other)
  Sender: FDA-Public Use
  Company Number: US-JNJFOC-20230429470

PATIENT
  Age: 5 Decade
  Sex: Male

DRUGS (2)
  1. INVOKANA [Suspect]
     Active Substance: CANAGLIFLOZIN
     Indication: Type 2 diabetes mellitus
     Route: 048
     Dates: start: 20170705
  2. INVOKANA [Suspect]
     Active Substance: CANAGLIFLOZIN
     Indication: Chronic kidney disease

REACTIONS (2)
  - Osteomyelitis acute [Unknown]
  - Toe amputation [Unknown]
